FAERS Safety Report 8789638 (Version 1)
Quarter: 2012Q4

REPORT INFORMATION
  Report Type: Spontaneous
  Country: US (occurrence: None)
  Receive Date: 20120905
  Receipt Date: 20120905
  Transmission Date: 20130627
  Serious: Yes (Hospitalization)
  Sender: FDA-Public Use
  Company Number: 2012-0919

PATIENT

DRUGS (9)
  1. SOMATULINE DEPOT [Suspect]
     Indication: ACROMEGALY
     Dosage: 90 mg (90 mg, 1 in 28 d), subcutaneous
     Route: 058
     Dates: start: 201211
  2. SOMAVERT [Suspect]
     Indication: ACROMEGALY
     Dosage: 10 mg (10 mg, 1 in 1 d)
     Dates: start: 20120315
  3. ANDROGEL (TESTOSTERONE) [Concomitant]
  4. CRESTOR (ROSUVASTATIN) [Concomitant]
  5. BUTORPHANOL (BUTORPHANOL) [Concomitant]
  6. LISINOPRIL (LISINOPRIL) [Concomitant]
  7. TRAZODONE (TRAZODONE) [Concomitant]
  8. CITALOPRAM (CITALOPRAM) [Concomitant]
  9. SPIRONOLACTONE (SPIRONOLACTONE) [Concomitant]

REACTIONS (12)
  - Hypophysectomy [None]
  - Insulin-like growth factor increased [None]
  - Blood cortisol increased [None]
  - Jaw disorder [None]
  - Diarrhoea [None]
  - Nausea [None]
  - Abdominal distension [None]
  - Back pain [None]
  - Abdominal discomfort [None]
  - Peripheral coldness [None]
  - Pain [None]
  - Weight increased [None]
